FAERS Safety Report 12965724 (Version 1)
Quarter: 2016Q4

REPORT INFORMATION
  Report Type: Spontaneous
  Country: US (occurrence: US)
  Receive Date: 20161122
  Receipt Date: 20161122
  Transmission Date: 20170207
  Serious: No
  Sender: FDA-Public Use
  Company Number: US-MYLANLABS-2016M1006398

PATIENT
  Sex: Female
  Weight: 52.15 kg

DRUGS (1)
  1. HYDROCHLOROTHIAZIDE/TRIAMTERENE [Suspect]
     Active Substance: HYDROCHLOROTHIAZIDE\TRIAMTERENE
     Dosage: UNK

REACTIONS (2)
  - Hypersensitivity [Recovered/Resolved]
  - Nausea [Recovered/Resolved]
